FAERS Safety Report 19004477 (Version 2)
Quarter: 2021Q2

REPORT INFORMATION
  Report Type: Spontaneous
  Country: US (occurrence: US)
  Receive Date: 20210312
  Receipt Date: 20210415
  Transmission Date: 20210717
  Serious: No
  Sender: FDA-Public Use
  Company Number: US-ASTRAZENECA-2021A057454

PATIENT
  Age: 29044 Day
  Sex: Male
  Weight: 74.8 kg

DRUGS (1)
  1. BUDESONIDE AND FORMOTEROL AEROSOL [Suspect]
     Active Substance: BUDESONIDE\FORMOTEROL FUMARATE DIHYDRATE
     Indication: CHRONIC OBSTRUCTIVE PULMONARY DISEASE
     Dosage: 160/4.5MCG 2 PUFFS TWICE A DAY
     Route: 055

REACTIONS (8)
  - Visual impairment [Unknown]
  - Headache [Unknown]
  - Musculoskeletal discomfort [Unknown]
  - Sinus disorder [Unknown]
  - Weight increased [Unknown]
  - Product dose omission issue [Unknown]
  - Hearing disability [Unknown]
  - Product packaging issue [Unknown]

NARRATIVE: CASE EVENT DATE: 20210209
